FAERS Safety Report 5093997-0 (Version None)
Quarter: 2006Q3

REPORT INFORMATION
  Report Type: 
  Country: None (occurrence: None)
  Receive Date: 20060728
  Receipt Date: 20060606
  Transmission Date: 20061208
  Serious: No
  Sender: FDA-Public Use
  Company Number: 253886

PATIENT
  Age: 59 Year
  Sex: Female
  Weight: 74.4 kg

DRUGS (4)
  1. LEVEMIR [Suspect]
     Indication: INSULIN-REQUIRING TYPE II DIABETES MELLITUS
     Dosage: 40 IU, QD, SUBCUTANEOUS
     Route: 058
     Dates: start: 20060320
  2. NOVOLOG [Suspect]
     Indication: INSULIN-REQUIRING TYPE II DIABETES MELLITUS
     Dosage: SLIDING SCALE, TID, SUBCUTANEOUS
     Route: 058
     Dates: start: 20060320
  3. ASPIRIN [Concomitant]
  4. MULTVITAMINS (VITAMIN B NOS, TOCOPHEROL, RETINOL, FOLIC ACID, ERGOCALC [Concomitant]

REACTIONS (1)
  - HEPATIC ENZYME INCREASED [None]
